FAERS Safety Report 18147371 (Version 3)
Quarter: 2020Q3

REPORT INFORMATION
  Report Type: Spontaneous
  Country: FR (occurrence: FR)
  Receive Date: 20200813
  Receipt Date: 20200930
  Transmission Date: 20201103
  Serious: Yes (Other)
  Sender: FDA-Public Use
  Company Number: FR-BAYER-2020-164429

PATIENT
  Age: 28 Year
  Sex: Female

DRUGS (1)
  1. MIRENA [Suspect]
     Active Substance: LEVONORGESTREL
     Indication: CONTRACEPTION
     Dosage: 20 ?G PER DAY CONTINUOUSLY
     Route: 015
     Dates: start: 20171111, end: 20200903

REACTIONS (3)
  - Device breakage [Recovered/Resolved]
  - Complication of device removal [None]
  - Device expulsion [Not Recovered/Not Resolved]

NARRATIVE: CASE EVENT DATE: 20200804
